FAERS Safety Report 4551438-3 (Version None)
Quarter: 2005Q1

REPORT INFORMATION
  Report Type: 
  Country: None (occurrence: None)
  Receive Date: 20050104
  Receipt Date: 20041220
  Transmission Date: 20050727
  Serious: Yes (Life-Threatening, Hospitalization)
  Sender: FDA-Public Use
  Company Number: 2003-00869

PATIENT
  Age: 56 Year
  Sex: Male

DRUGS (1)
  1. IMMUCYST (BCG - IT (CONNAUGHT)) [Suspect]
     Route: 043
     Dates: start: 20030428

REACTIONS (11)
  - ASTHENIA [None]
  - BOVINE TUBERCULOSIS [None]
  - CHILLS [None]
  - COUGH [None]
  - FATIGUE [None]
  - HAEMATURIA [None]
  - HYPERHIDROSIS [None]
  - MALAISE [None]
  - PROSTATITIS [None]
  - VOMITING [None]
  - WEIGHT DECREASED [None]
